FAERS Safety Report 25024042 (Version 1)
Quarter: 2025Q1

REPORT INFORMATION
  Report Type: Spontaneous
  Country: CN (occurrence: CN)
  Receive Date: 20250228
  Receipt Date: 20250228
  Transmission Date: 20250408
  Serious: Yes (Hospitalization, Other)
  Sender: ANI
  Company Number: CN-ANIPHARMA-2025-CN-000052

PATIENT
  Age: 66 Year
  Sex: Male
  Weight: 59 kg

DRUGS (4)
  1. BICALUTAMIDE [Suspect]
     Active Substance: BICALUTAMIDE
     Indication: Prostate cancer
     Route: 048
     Dates: start: 20240418
  2. DEVICE [Suspect]
     Active Substance: DEVICE
  3. GOSERELIN [Suspect]
     Active Substance: GOSERELIN
     Route: 050
     Dates: start: 20240218
  4. AMBROXOL [Concomitant]
     Active Substance: AMBROXOL

REACTIONS (2)
  - Interstitial lung disease [Unknown]
  - Tachypnoea [Unknown]

NARRATIVE: CASE EVENT DATE: 20250208
